FAERS Safety Report 9735896 (Version 2)
Quarter: 2013Q4

REPORT INFORMATION
  Report Type: Spontaneous
  Country: US (occurrence: US)
  Receive Date: 20131206
  Receipt Date: 20131206
  Transmission Date: 20140711
  Serious: No
  Sender: FDA-Public Use
  Company Number: US-GILEAD-2009-0024137

PATIENT
  Sex: Female

DRUGS (2)
  1. LETAIRIS [Suspect]
     Indication: PULMONARY ARTERIAL HYPERTENSION
     Route: 048
     Dates: start: 20090817
  2. TRACLEER [Concomitant]

REACTIONS (4)
  - Nausea [Recovered/Resolved]
  - Overdose [Recovered/Resolved]
  - Headache [Recovered/Resolved]
  - Nasal congestion [Recovered/Resolved]
